FAERS Safety Report 7353408-9 (Version None)
Quarter: 2011Q1

REPORT INFORMATION
  Report Type: 
  Country: None (occurrence: None)
  Receive Date: 20110310
  Receipt Date: 20110310
  Transmission Date: 20110831
  Serious: Yes (Other)
  Sender: FDA-Public Use
  Company Number: None

PATIENT
  Age: 47 Year
  Sex: Female
  Weight: 79.8331 kg

DRUGS (5)
  1. CLARITIN [Concomitant]
  2. BUPROPION HCL [Suspect]
     Indication: DEPRESSION
     Dosage: 150 MG QD PO
     Route: 048
     Dates: start: 20110116, end: 20110228
  3. BUPROPION HCL [Suspect]
     Indication: DEPRESSION
     Dosage: 150 MG QD PO
     Route: 048
     Dates: start: 20110303, end: 20110306
  4. FLUOXETINE [Concomitant]
  5. ADVAIR DISKUS 100/50 [Concomitant]

REACTIONS (2)
  - VERTIGO [None]
  - PRODUCT SUBSTITUTION ISSUE [None]
